FAERS Safety Report 12537356 (Version 2)
Quarter: 2016Q3

REPORT INFORMATION
  Report Type: Spontaneous
  Country: US (occurrence: US)
  Receive Date: 20160707
  Receipt Date: 20160920
  Transmission Date: 20161109
  Serious: No
  Sender: FDA-Public Use
  Company Number: US-CELGENEUS-USA-2016070366

PATIENT
  Age: 82 Year
  Sex: Female

DRUGS (1)
  1. THALOMID [Suspect]
     Active Substance: THALIDOMIDE
     Indication: MYELOFIBROSIS
     Dosage: 50 MILLIGRAM
     Route: 048
     Dates: start: 20160329

REACTIONS (4)
  - Contusion [Unknown]
  - Fatigue [Unknown]
  - Joint swelling [Unknown]
  - Meralgia paraesthetica [Unknown]

NARRATIVE: CASE EVENT DATE: 2016
